FAERS Safety Report 5096747-7 (Version None)
Quarter: 2006Q3

REPORT INFORMATION
  Report Type: 
  Country: None (occurrence: None)
  Receive Date: 20060831
  Receipt Date: 20060817
  Transmission Date: 20061208
  Serious: Yes (Hospitalization)
  Sender: FDA-Public Use
  Company Number: 2006EU002366

PATIENT
  Age: 11 Month
  Sex: Female

DRUGS (1)
  1. PROTOPIC [Suspect]
     Indication: DERMATITIS ATOPIC
     Dosage: 0.03%, TOPICAL
     Route: 061
     Dates: start: 20060701, end: 20060817

REACTIONS (4)
  - CONVULSION IN CHILDHOOD [None]
  - HEAD INJURY [None]
  - INFANTILE SPASMS [None]
  - LOSS OF CONSCIOUSNESS [None]
